FAERS Safety Report 7027574-9 (Version None)
Quarter: 2010Q4

REPORT INFORMATION
  Report Type: 
  Country: None (occurrence: None)
  Receive Date: 20101004
  Receipt Date: 20100927
  Transmission Date: 20110411
  Serious: Yes (Hospitalization)
  Sender: FDA-Public Use
  Company Number: JP-ABBOTT-10P-087-0647549-00

PATIENT
  Sex: Female
  Weight: 38 kg

DRUGS (13)
  1. HUMIRA [Suspect]
     Indication: RHEUMATOID ARTHRITIS
     Route: 058
     Dates: start: 20090723, end: 20100401
  2. PREDNISOLONE [Concomitant]
     Indication: RHEUMATOID ARTHRITIS
     Dosage: 7.5 MG DAILY
     Dates: start: 20090723, end: 20090819
  3. PREDNISOLONE [Concomitant]
     Dosage: 6 MG DAILY
     Dates: start: 20090820
  4. FAMOTIDINE [Concomitant]
     Indication: GASTRITIS PROPHYLAXIS
     Dosage: 20 MG DAILY
     Dates: start: 20080327
  5. CALCIUM LACTATE [Concomitant]
     Indication: OSTEOPOROSIS PROPHYLAXIS
     Dosage: 3 GRAM DAILY
     Dates: start: 20080327
  6. SENNA LEAF_SENNA POD [Concomitant]
     Indication: PRODUCT USED FOR UNKNOWN INDICATION
     Dosage: 1 GRAM DAILY
     Dates: start: 20080327
  7. CHINESE MEDICINE [Concomitant]
     Indication: SJOGREN'S SYNDROME
     Dosage: 9 GRAM DAILY
     Dates: start: 20080327
  8. PANTETHINE [Concomitant]
     Indication: PRODUCT USED FOR UNKNOWN INDICATION
     Dosage: 3 GRAM DAILY
     Dates: start: 20080327
  9. ALFACALCIDOL [Concomitant]
     Indication: PRODUCT USED FOR UNKNOWN INDICATION
     Dosage: 0.5 MICROGRAM DAILY
     Dates: start: 20080327
  10. FLUVASTATIN SODIUM [Concomitant]
     Indication: PRODUCT USED FOR UNKNOWN INDICATION
     Dosage: 20 MILLIGRAM DAILY
     Dates: start: 20080327
  11. MOSAPRIDE CITRATE [Concomitant]
     Indication: PRODUCT USED FOR UNKNOWN INDICATION
     Dosage: 15 MG DAILY
     Dates: start: 20080327
  12. ITOPRIDE HYDROCHLORIDE [Concomitant]
     Indication: PRODUCT USED FOR UNKNOWN INDICATION
     Dosage: 150 MG DAILY
     Dates: start: 20080327
  13. CALCIUM GLUCONATE [Concomitant]
     Indication: PRODUCT USED FOR UNKNOWN INDICATION
     Dosage: 6 GRAM DAILY
     Dates: start: 20080327

REACTIONS (3)
  - APPENDICITIS [None]
  - INTESTINAL OBSTRUCTION [None]
  - INTUSSUSCEPTION [None]
